FAERS Safety Report 9422029 (Version 1)
Quarter: 2013Q3

REPORT INFORMATION
  Report Type: Spontaneous
  Country: IN (occurrence: IN)
  Receive Date: 20130726
  Receipt Date: 20130726
  Transmission Date: 20140515
  Serious: Yes (Other)
  Sender: FDA-Public Use
  Company Number: IN-JNJFOC-20130711206

PATIENT
  Age: 32 Year
  Sex: Male

DRUGS (2)
  1. RISPERIDONE [Suspect]
     Indication: SCHIZOPHRENIA, CATATONIC TYPE
     Route: 048
  2. LORAZEPAM [Suspect]
     Indication: CATATONIA
     Dosage: 2-4 MG/DAY
     Route: 048

REACTIONS (1)
  - Ileus paralytic [Recovering/Resolving]
